FAERS Safety Report 7564842-6 (Version None)
Quarter: 2011Q2

REPORT INFORMATION
  Report Type: 
  Country: None (occurrence: None)
  Receive Date: 20110622
  Receipt Date: 20110125
  Transmission Date: 20111010
  Serious: Yes (Death)
  Sender: FDA-Public Use
  Company Number: US-MYLANLABS-2011S1000046

PATIENT
  Age: 34 Year
  Sex: Female

DRUGS (8)
  1. CLOZAPINE [Suspect]
     Indication: SCHIZOAFFECTIVE DISORDER
     Route: 048
     Dates: start: 20091117, end: 20101215
  2. CLOZAPINE [Suspect]
     Indication: SCHIZOPHRENIA, PARANOID TYPE
     Route: 048
     Dates: start: 20091117, end: 20101215
  3. ATENOLOL [Concomitant]
     Dates: start: 20100701, end: 20101118
  4. ADDERALL 10 [Concomitant]
     Dates: start: 20100802, end: 20101124
  5. CLOZAPINE [Suspect]
     Route: 048
     Dates: start: 20091117, end: 20101215
  6. XANAX [Concomitant]
     Dates: start: 20100802, end: 20101026
  7. CLOZAPINE [Suspect]
     Route: 048
     Dates: start: 20091117, end: 20101215
  8. CELEXA [Concomitant]
     Dates: start: 20100924, end: 20101115

REACTIONS (1)
  - DEATH [None]
